FAERS Safety Report 24025236 (Version 1)
Quarter: 2024Q2

REPORT INFORMATION
  Report Type: Report from Study
  Country: PH (occurrence: PH)
  Receive Date: 20240628
  Receipt Date: 20240628
  Transmission Date: 20240716
  Serious: No
  Sender: FDA-Public Use
  Company Number: PH-ROCHE-3368379

PATIENT
  Age: 60 Year
  Sex: Female
  Weight: 56.0 kg

DRUGS (1)
  1. ALECENSA [Suspect]
     Active Substance: ALECTINIB HYDROCHLORIDE
     Indication: Non-small cell lung cancer metastatic
     Dosage: 150MG
     Route: 048

REACTIONS (2)
  - Hypersensitivity [Unknown]
  - Neoplasm recurrence [Unknown]
